FAERS Safety Report 7077088-5 (Version None)
Quarter: 2010Q4

REPORT INFORMATION
  Report Type: 
  Country: None (occurrence: None)
  Receive Date: 20101101
  Receipt Date: 20101018
  Transmission Date: 20110411
  Serious: Yes (Other)
  Sender: FDA-Public Use
  Company Number: PHFR2010GB04864

PATIENT
  Sex: Male

DRUGS (2)
  1. DEFERASIROX [Suspect]
     Indication: IRON OVERLOAD
     Dosage: 500 MG/DAY
  2. PERINDOPRIL [Concomitant]
     Indication: HYPERTENSION

REACTIONS (2)
  - CORNEAL DEPOSITS [None]
  - IRITIS [None]
